FAERS Safety Report 10552024 (Version 1)
Quarter: 2014Q4

REPORT INFORMATION
  Report Type: Spontaneous
  Country: PH (occurrence: PH)
  Receive Date: 20141029
  Receipt Date: 20141029
  Transmission Date: 20150529
  Serious: Yes (Life-Threatening)
  Sender: FDA-Public Use
  Company Number: PH-ACTAVIS-2014-22683

PATIENT
  Age: 45 Year
  Sex: Female

DRUGS (1)
  1. PACTAL [Suspect]
     Active Substance: PACLITAXEL
     Indication: OVARIAN CANCER
     Dosage: 260 MG/M2, CYCLICAL
     Route: 042
     Dates: start: 20141010

REACTIONS (4)
  - Pruritus generalised [Recovered/Resolved]
  - Respiratory distress [Recovered/Resolved]
  - Dyspnoea [Recovered/Resolved]
  - Swelling face [Recovered/Resolved]

NARRATIVE: CASE EVENT DATE: 20141010
